FAERS Safety Report 6230909-8 (Version None)
Quarter: 2009Q2

REPORT INFORMATION
  Report Type: 
  Country: None (occurrence: None)
  Receive Date: 20090616
  Receipt Date: 20090609
  Transmission Date: 20091009
  Serious: Yes (Hospitalization)
  Sender: FDA-Public Use
  Company Number: PHBS2007JP20964

PATIENT
  Sex: Female
  Weight: 46 kg

DRUGS (11)
  1. GLEEVEC [Suspect]
     Indication: CHRONIC MYELOID LEUKAEMIA
     Dosage: 400 MG/DAY
     Route: 048
     Dates: start: 20071004, end: 20071210
  2. GLEEVEC [Suspect]
     Dosage: 100 MG/DAY
     Route: 048
     Dates: start: 20080109, end: 20080115
  3. GLEEVEC [Suspect]
     Dosage: 200 MG/DAY
     Route: 048
     Dates: start: 20080116, end: 20080124
  4. GLEEVEC [Suspect]
     Dosage: 300 MG/DAY
     Route: 048
     Dates: start: 20080125, end: 20080131
  5. GLEEVEC [Suspect]
     Dosage: 400 MG/DAY
     Route: 048
     Dates: start: 20080201
  6. CYTARABINE [Concomitant]
     Indication: ACUTE LYMPHOCYTIC LEUKAEMIA
  7. PREDONINE [Concomitant]
     Dosage: 40 MG/DAY
     Dates: start: 20071218
  8. SELBEX [Concomitant]
     Indication: GASTRIC ULCER
     Dosage: 150 MG/DAY
     Route: 048
     Dates: start: 20070905
  9. GASTER [Concomitant]
     Indication: GASTRIC ULCER
     Dosage: 20MG/DAY
     Route: 048
     Dates: start: 20070905
  10. BAKTAR [Concomitant]
     Indication: ANTIFUNGAL PROPHYLAXIS
     Dosage: 400 MG, UNK
     Dates: start: 20070205
  11. LASIX [Concomitant]
     Indication: OEDEMA
     Dosage: 20MG/DAY
     Route: 048
     Dates: start: 20071203

REACTIONS (3)
  - CELL MARKER INCREASED [None]
  - INTERSTITIAL LUNG DISEASE [None]
  - MALAISE [None]
